FAERS Safety Report 9179869 (Version 1)
Quarter: 2012Q4

REPORT INFORMATION
  Report Type: 
  Country: FR (occurrence: FR)
  Receive Date: 20121029
  Receipt Date: 20121029
  Transmission Date: 20130627
  Serious: Yes (Hospitalization)
  Sender: FDA-Public Use
  Company Number: FR-ROCHE-1148661

PATIENT
  Age: 71 None
  Sex: Male

DRUGS (3)
  1. CELLCEPT [Suspect]
     Indication: LIVER TRANSPLANT
     Route: 048
  2. VYNDAQEL [Suspect]
     Indication: AMYLOIDOSIS
     Route: 048
     Dates: start: 20120801
  3. TACROLIMUS HYDRATE [Suspect]
     Indication: LIVER TRANSPLANT
     Route: 048

REACTIONS (1)
  - Thrombophlebitis [Recovering/Resolving]
